FAERS Safety Report 6622081-7 (Version None)
Quarter: 2010Q1

REPORT INFORMATION
  Report Type: 
  Country: None (occurrence: None)
  Receive Date: 20100304
  Receipt Date: 20100223
  Transmission Date: 20100710
  Serious: Yes (Other)
  Sender: FDA-Public Use
  Company Number: 2010SP011424

PATIENT
  Age: 52 Year
  Sex: Male
  Weight: 110 kg

DRUGS (8)
  1. MIRTAZAPINE [Suspect]
     Indication: DEPRESSION
     Dosage: PO
     Route: 048
     Dates: start: 20091221, end: 20100120
  2. AMITRIPTYLINE HCL [Concomitant]
  3. CREATINE [Concomitant]
  4. GLUCOSAMINE [Concomitant]
  5. MULTI-VITAMIN [Concomitant]
  6. PROTEIN [Concomitant]
  7. SERTRALINE HCL [Concomitant]
  8. VITAMIN B6 [Concomitant]

REACTIONS (3)
  - DYSURIA [None]
  - PAIN [None]
  - URINARY RETENTION [None]
